FAERS Safety Report 8049410-4 (Version None)
Quarter: 2012Q1

REPORT INFORMATION
  Report Type: 
  Country: None (occurrence: None)
  Receive Date: 20120117
  Receipt Date: 20120110
  Transmission Date: 20120608
  Serious: Yes (Other)
  Sender: FDA-Public Use
  Company Number: US-ROCHE-1029355

PATIENT
  Sex: Female
  Weight: 65.376 kg

DRUGS (15)
  1. SIMVASTATIN [Concomitant]
     Dates: start: 20111216
  2. CYMBALTA [Concomitant]
     Dates: start: 20111222
  3. NYSTATIN [Concomitant]
     Dosage: 100000UNIT/ML
     Dates: start: 20111003
  4. DEPO-MEDROL [Concomitant]
     Dosage: 80 MG/ML
     Dates: start: 20111222
  5. CARVEDILOL [Concomitant]
     Dates: start: 20111202
  6. POTASSIUM CHLORIDE [Concomitant]
     Dates: start: 20111125
  7. DOXYCYCLINE [Concomitant]
     Dates: start: 20111123
  8. AZOR (UNITED STATES) [Concomitant]
     Dosage: 5MG-40MG
     Dates: start: 20111017
  9. ACTEMRA [Suspect]
     Indication: PRODUCT USED FOR UNKNOWN INDICATION
     Route: 042
     Dates: start: 20100407
  10. PREDNISONE TAB [Concomitant]
     Dates: start: 20111123
  11. HYDROCODONE BITARTRATE AND ACETAMINOPHEN [Concomitant]
     Dosage: 10MG-325 MG
     Dates: start: 20111222
  12. LISINOPRIL [Concomitant]
     Dates: start: 20111216
  13. FUROSEMIDE [Concomitant]
     Dates: start: 20111216
  14. XOPENEX [Concomitant]
     Dosage: 1.25MG/3ML
     Dates: start: 20111123
  15. AZITHROMYCIN [Concomitant]
     Dosage: 500 MG, 250 MG
     Dates: start: 20110405

REACTIONS (3)
  - PARAESTHESIA [None]
  - PERIPHERAL ARTERIAL OCCLUSIVE DISEASE [None]
  - HYPOAESTHESIA [None]
